FAERS Safety Report 5755339-4 (Version None)
Quarter: 2008Q2

REPORT INFORMATION
  Report Type: 
  Country: None (occurrence: None)
  Receive Date: 20080602
  Receipt Date: 20080523
  Transmission Date: 20081010
  Serious: Yes (Other)
  Sender: FDA-Public Use
  Company Number: JP-BRISTOL-MYERS SQUIBB COMPANY-14211643

PATIENT
  Age: 49 Year
  Sex: Male

DRUGS (9)
  1. EFAVIRENZ [Suspect]
     Indication: HIV INFECTION
     Route: 048
     Dates: start: 20011208
  2. EPIVIR [Suspect]
     Indication: HIV INFECTION
     Dosage: 08-DEC-2001 TO 02-JUL-2004: 150MG BID 03-JUL-2004 UNK: 300MG/D
     Route: 048
     Dates: start: 20011208
  3. DIAMOX SRC [Concomitant]
     Dates: start: 20070515
  4. KELNAC [Concomitant]
  5. ASPARA-K [Concomitant]
     Dates: start: 20070515
  6. FERROMIA [Concomitant]
     Dates: start: 20070425
  7. VIREAD [Concomitant]
     Dates: start: 20040703
  8. URSO 250 [Concomitant]
  9. VITAMEDIN [Concomitant]

REACTIONS (3)
  - GLAUCOMA [None]
  - GLAUCOMATOCYCLITIC CRISES [None]
  - HELICOBACTER INFECTION [None]
